FAERS Safety Report 7783433-5 (Version None)
Quarter: 2011Q3

REPORT INFORMATION
  Report Type: 
  Country: None (occurrence: None)
  Receive Date: 20110928
  Receipt Date: 20110928
  Transmission Date: 20111222
  Serious: Yes (Other)
  Sender: FDA-Public Use
  Company Number: None

PATIENT
  Age: 74 Year
  Sex: Male

DRUGS (1)
  1. METHYLPREDNISOLONE [Suspect]
     Indication: SCIATICA
     Dates: start: 20110925, end: 20110926

REACTIONS (3)
  - URTICARIA [None]
  - RASH MACULO-PAPULAR [None]
  - RASH PRURITIC [None]
